FAERS Safety Report 5187508-9 (Version None)
Quarter: 2006Q4

REPORT INFORMATION
  Report Type: 
  Country: None (occurrence: None)
  Receive Date: 20061220
  Receipt Date: 20051108
  Transmission Date: 20070319
  Serious: No
  Sender: FDA-Public Use
  Company Number: US-AMGEN-US157058

PATIENT
  Age: 54 Year
  Sex: Male
  Weight: 96.2 kg

DRUGS (9)
  1. ENBREL [Suspect]
     Indication: RHEUMATOID ARTHRITIS
     Dates: start: 20030401
  2. BENADRYL [Concomitant]
  3. LORATADINE [Concomitant]
  4. PREDNISONE TAB [Concomitant]
  5. NASACORT [Concomitant]
  6. ETODOLAC [Concomitant]
  7. RANITIDINE [Concomitant]
  8. PROTONIX [Concomitant]
  9. SEREVENT [Concomitant]
     Route: 055

REACTIONS (6)
  - LIP SWELLING [None]
  - PRURITUS [None]
  - RASH MACULAR [None]
  - SINUSITIS [None]
  - URTICARIA [None]
  - WOUND [None]
